APPROVED DRUG PRODUCT: NESACAINE
Active Ingredient: CHLOROPROCAINE HYDROCHLORIDE
Strength: 2%
Dosage Form/Route: INJECTABLE;INJECTION
Application: N009435 | Product #002 | TE Code: AP
Applicant: FRESENIUS KABI USA LLC
Approved: Approved Prior to Jan 1, 1982 | RLD: Yes | RS: No | Type: RX